FAERS Safety Report 6359031-7 (Version None)
Quarter: 2009Q3

REPORT INFORMATION
  Report Type: 
  Country: None (occurrence: None)
  Receive Date: 20090917
  Receipt Date: 20090914
  Transmission Date: 20100115
  Serious: Yes (Hospitalization)
  Sender: FDA-Public Use
  Company Number: US-BIOGENIDEC-2009BI022200

PATIENT
  Age: 61 Year
  Sex: Female

DRUGS (7)
  1. TYSABRI [Suspect]
     Indication: MULTIPLE SCLEROSIS
     Route: 042
     Dates: start: 20070118, end: 20071130
  2. TYSABRI [Suspect]
     Route: 042
     Dates: start: 20090212, end: 20090409
  3. BACLOFEN [Concomitant]
  4. METOPROLOL TARTRATE [Concomitant]
  5. ADVAIR HFA [Concomitant]
  6. ACIPHEX [Concomitant]
  7. SINGULAIR [Concomitant]

REACTIONS (2)
  - NON-SMALL CELL LUNG CANCER STAGE IIIB [None]
  - PULMONARY THROMBOSIS [None]
